FAERS Safety Report 18590850 (Version 3)
Quarter: 2021Q1

REPORT INFORMATION
  Report Type: Spontaneous
  Country: RO (occurrence: RO)
  Receive Date: 20201208
  Receipt Date: 20210113
  Transmission Date: 20210419
  Serious: Yes (Other)
  Sender: FDA-Public Use
  Company Number: RO-IPSEN BIOPHARMACEUTICALS, INC.-2020-24199

PATIENT
  Age: 50 Year
  Sex: Female

DRUGS (3)
  1. SOMATULINE AUTOGEL [Suspect]
     Active Substance: LANREOTIDE ACETATE
     Indication: SOMATOSTATINOMA
     Route: 065
  2. TEMOZOLAMIDE [Suspect]
     Active Substance: TEMOZOLOMIDE
     Indication: SOMATOSTATINOMA
     Dosage: CAPTEM CHEMOTHERAPY REGIMEN RECEIVED ON DAYS 10?14 EVERY 28 DAYS
     Route: 065
  3. CAPECITABINE. [Suspect]
     Active Substance: CAPECITABINE
     Indication: SOMATOSTATINOMA
     Dosage: CAPTEM CHEMOTHERAPY REGIMEN RECEIVED ON DAYS 1?14
     Route: 065

REACTIONS (2)
  - Thrombocytopenia [Unknown]
  - Palmar-plantar erythrodysaesthesia syndrome [Unknown]
